FAERS Safety Report 8254911-X (Version None)
Quarter: 2012Q2

REPORT INFORMATION
  Report Type: 
  Country: None (occurrence: None)
  Receive Date: 20120403
  Receipt Date: 20120327
  Transmission Date: 20120825
  Serious: Yes (Other)
  Sender: FDA-Public Use
  Company Number: US-PFIZER INC-2012079443

PATIENT
  Sex: Female

DRUGS (1)
  1. LYRICA [Suspect]
     Indication: CONVULSION
     Dosage: UNK
     Route: 048

REACTIONS (1)
  - CONVULSION [None]
